FAERS Safety Report 6887073-1 (Version None)
Quarter: 2010Q3

REPORT INFORMATION
  Report Type: 
  Country: None (occurrence: None)
  Receive Date: 20100730
  Receipt Date: 20100723
  Transmission Date: 20110219
  Serious: Yes (Death, Hospitalization)
  Sender: FDA-Public Use
  Company Number: US-JNJFOC-20100708132

PATIENT
  Sex: Female
  Weight: 123 kg

DRUGS (14)
  1. DOXORUBICIN HYDROCHLORIDE [Suspect]
     Indication: OVARIAN CANCER METASTATIC
     Route: 042
  2. ZOFRAN [Concomitant]
     Route: 065
  3. VITAMIN B-12 [Concomitant]
     Route: 030
  4. MIRALAX [Concomitant]
     Route: 048
  5. OMEPRAZOLE [Concomitant]
     Route: 065
  6. MAGNESIUM OXIDE [Concomitant]
     Route: 065
  7. PHENERGAN [Concomitant]
     Route: 065
  8. NEURONTIN [Concomitant]
     Route: 065
  9. VITAMIN B6 [Concomitant]
     Route: 065
  10. NORVASC [Concomitant]
     Route: 065
  11. SODIUM BICARBONATE [Concomitant]
     Route: 065
  12. IRON [Concomitant]
     Route: 065
  13. NORCO [Concomitant]
     Route: 065
  14. NOVOLOG [Concomitant]
     Route: 065

REACTIONS (18)
  - ANAEMIA OF CHRONIC DISEASE [None]
  - BLOOD CALCIUM DECREASED [None]
  - BLOOD GLUCOSE INCREASED [None]
  - BLOOD SODIUM DECREASED [None]
  - FLUID OVERLOAD [None]
  - HAEMODIALYSIS [None]
  - HYPOALBUMINAEMIA [None]
  - LOBAR PNEUMONIA [None]
  - MALIGNANT NEOPLASM PROGRESSION [None]
  - MALNUTRITION [None]
  - METABOLIC ACIDOSIS [None]
  - METASTASES TO PLEURA [None]
  - NEUTROPHIL PERCENTAGE INCREASED [None]
  - OVARIAN CANCER [None]
  - RENAL FAILURE [None]
  - RESPIRATORY ACIDOSIS [None]
  - RESPIRATORY FAILURE [None]
  - VOMITING [None]
